FAERS Safety Report 18312568 (Version 2)
Quarter: 2020Q4

REPORT INFORMATION
  Report Type: Spontaneous
  Country: None (occurrence: US)
  Receive Date: 20200925
  Receipt Date: 20201014
  Transmission Date: 20210113
  Serious: No
  Sender: FDA-Public Use
  Company Number: US-HORIZON-ACT-0350-2020

PATIENT
  Age: 43 Year
  Sex: Male

DRUGS (5)
  1. ACTIMMUNE [Suspect]
     Active Substance: INTERFERON GAMMA-1B
     Indication: CHRONIC GRANULOMATOUS DISEASE
     Dosage: 115 ??G SUBCUTANEOUSLY EVERY OTHER DAY THREE TIMES A WEEK ; TIME INTERVAL: 0.33 WK
     Route: 050
     Dates: start: 20120123
  2. AZITHROMYCIN ANHYDROUS. [Concomitant]
     Active Substance: AZITHROMYCIN ANHYDROUS
  3. BACTRIM [Concomitant]
     Active Substance: SULFAMETHOXAZOLE\TRIMETHOPRIM
  4. ITRACONAZOLE. [Concomitant]
     Active Substance: ITRACONAZOLE
  5. OLAPATADINE [Concomitant]

REACTIONS (9)
  - Dehydration [Recovered/Resolved]
  - Renal pain [Unknown]
  - Myalgia [Not Recovered/Not Resolved]
  - Pain [Not Recovered/Not Resolved]
  - Back pain [Unknown]
  - Thirst [Recovered/Resolved]
  - Constipation [Recovered/Resolved]
  - Product dose omission issue [Not Recovered/Not Resolved]
  - Blood creatinine increased [Not Recovered/Not Resolved]

NARRATIVE: CASE EVENT DATE: 2019
